FAERS Safety Report 16479941 (Version 1)
Quarter: 2019Q2

REPORT INFORMATION
  Report Type: Spontaneous
  Country: IL (occurrence: IL)
  Receive Date: 20190626
  Receipt Date: 20190626
  Transmission Date: 20190711
  Serious: Yes (Other)
  Sender: FDA-Public Use
  Company Number: IL-PFIZER INC-2019270212

PATIENT
  Age: 36 Year
  Sex: Female

DRUGS (1)
  1. MISOPROSTOL. [Suspect]
     Active Substance: MISOPROSTOL
     Dosage: 800 UG, UNK

REACTIONS (4)
  - Feeling hot [Unknown]
  - Dizziness [Unknown]
  - Oropharyngeal pain [Unknown]
  - Palmar erythema [Unknown]
